FAERS Safety Report 21523973 (Version 2)
Quarter: 2022Q4

REPORT INFORMATION
  Report Type: Spontaneous
  Country: IT (occurrence: IT)
  Receive Date: 20221029
  Receipt Date: 20221111
  Transmission Date: 20230113
  Serious: Yes (Hospitalization)
  Sender: FDA-Public Use
  Company Number: None

PATIENT
  Sex: Female

DRUGS (3)
  1. RAMIPRIL [Suspect]
     Active Substance: RAMIPRIL
     Indication: Intentional overdose
     Dosage: REPORTED AND UNSPECIFIED INTENTIONAL INTAKE OF 1 PACK OF RAMIPRIL 5 MG,
     Dates: start: 20220913, end: 20220913
  2. BROMAZEPAM [Suspect]
     Active Substance: BROMAZEPAM
     Indication: Intentional overdose
     Dosage: REPORTED VOLUNTARY INTAKE OF A BOTTLE OF BROMAZEPAM, QUANTITY NOT SPECIFIED
     Dates: start: 20220913, end: 20220913
  3. NORVASC [Suspect]
     Active Substance: AMLODIPINE BESYLATE
     Indication: Intentional overdose
     Dosage: REPORTED AND UNSPECIFIED INTAKE OF 1 PACK OF NORVASC 5 MG
     Dates: start: 20220913, end: 20220913

REACTIONS (4)
  - Sopor [Not Recovered/Not Resolved]
  - Somnolence [Not Recovered/Not Resolved]
  - Intentional overdose [Not Recovered/Not Resolved]
  - Hypotension [Recovering/Resolving]

NARRATIVE: CASE EVENT DATE: 20220913
